FAERS Safety Report 7779117-X (Version None)
Quarter: 2011Q3

REPORT INFORMATION
  Report Type: 
  Country: None (occurrence: None)
  Receive Date: 20110926
  Receipt Date: 20110916
  Transmission Date: 20111222
  Serious: Yes (Other)
  Sender: FDA-Public Use
  Company Number: PHHY2011DK82652

PATIENT
  Sex: Male

DRUGS (3)
  1. FLUOROURACIL [Suspect]
     Indication: METASTASIS
     Route: 065
     Dates: start: 20081231, end: 20090601
  2. LEUCOVORIN CALCIUM [Suspect]
     Indication: METASTASIS
     Route: 065
     Dates: start: 20081231, end: 20090601
  3. OXALIPLATIN [Suspect]
     Indication: METASTASIS
     Route: 065
     Dates: start: 20081231, end: 20090601

REACTIONS (6)
  - BALANCE DISORDER [None]
  - HYPOAESTHESIA [None]
  - COORDINATION ABNORMAL [None]
  - POLYNEUROPATHY [None]
  - MOTOR DYSFUNCTION [None]
  - SENSORY DISTURBANCE [None]
